FAERS Safety Report 13616567 (Version 1)
Quarter: 2017Q2

REPORT INFORMATION
  Report Type: Spontaneous
  Country: US (occurrence: US)
  Receive Date: 20170606
  Receipt Date: 20170606
  Transmission Date: 20170830
  Serious: No
  Sender: FDA-Public Use
  Company Number: US-SA-2016SA092767

PATIENT
  Age: 59 Year
  Sex: Female

DRUGS (5)
  1. LANTUS SOLOSTAR [Suspect]
     Active Substance: INSULIN GLARGINE
     Indication: DIABETES MELLITUS
     Dosage: DOSE:14 UNIT(S)
     Route: 065
     Dates: start: 201603
  2. LANTUS SOLOSTAR [Suspect]
     Active Substance: INSULIN GLARGINE
     Indication: DIABETES MELLITUS
     Dosage: DOSE:8 UNIT(S)
     Route: 065
     Dates: start: 20160504, end: 20160504
  3. COUMADIN [Concomitant]
     Active Substance: WARFARIN SODIUM
  4. SOLOSTAR [Concomitant]
     Active Substance: DEVICE
     Dosage: DOSE 14 UNITS
     Dates: start: 201603
  5. SOLOSTAR [Concomitant]
     Active Substance: DEVICE
     Dosage: RECEIVED 08 UNITS OF HER 14 UNITS DOSE
     Dates: start: 2016

REACTIONS (2)
  - Faeces discoloured [Unknown]
  - Incorrect dose administered [Unknown]
